FAERS Safety Report 16263596 (Version 1)
Quarter: 2019Q2

REPORT INFORMATION
  Report Type: Spontaneous
  Country: US (occurrence: US)
  Receive Date: 20190327
  Receipt Date: 20190327
  Transmission Date: 20190711
  Serious: Yes (Hospitalization)
  Sender: FDA-Public Use
  Company Number: None

PATIENT
  Age: 47 Year
  Sex: Male
  Weight: 79.2 kg

DRUGS (3)
  1. CISPLATIN. [Suspect]
     Active Substance: CISPLATIN
     Dates: end: 20190314
  2. GEMCITABINE HYDROCHLORIDE. [Suspect]
     Active Substance: GEMCITABINE HYDROCHLORIDE
     Dates: end: 20190314
  3. PACLITAXEL PROTEIN-BOUND PARTICLES (ALBUMIN-BOUND) [Suspect]
     Active Substance: PACLITAXEL
     Dates: end: 20190314

REACTIONS (2)
  - Thrombocytopenia [None]
  - Cerebrovascular accident [None]

NARRATIVE: CASE EVENT DATE: 20190315
